FAERS Safety Report 6326445-0 (Version None)
Quarter: 2009Q3

REPORT INFORMATION
  Report Type: 
  Country: None (occurrence: None)
  Receive Date: 20090820
  Receipt Date: 20090528
  Transmission Date: 20100115
  Serious: Yes (Death, Other)
  Sender: FDA-Public Use
  Company Number: 2009008780

PATIENT
  Age: 50 Year
  Sex: Male

DRUGS (1)
  1. TRISENOX [Suspect]
     Indication: ACUTE PROMYELOCYTIC LEUKAEMIA
     Dosage: INTRAVENOUS DRIP
     Route: 041

REACTIONS (10)
  - ACCIDENT [None]
  - ASPERGILLOSIS [None]
  - FALL [None]
  - HERPES VIRUS INFECTION [None]
  - LUNG INFECTION PSEUDOMONAL [None]
  - NEUTROPENIA [None]
  - OESOPHAGITIS [None]
  - RETINOIC ACID SYNDROME [None]
  - SINUSITIS [None]
  - STAPHYLOCOCCAL SEPSIS [None]
